FAERS Safety Report 25127558 (Version 4)
Quarter: 2025Q4

REPORT INFORMATION
  Report Type: Spontaneous
  Country: JP (occurrence: JP)
  Receive Date: 20250327
  Receipt Date: 20251029
  Transmission Date: 20260117
  Serious: Yes (Other)
  Sender: BRISTOL-MYERS SQUIBB COMPANY
  Company Number: JP-BRISTOL-MYERS SQUIBB COMPANY-2025-045013

PATIENT
  Age: 8 Decade
  Sex: Female

DRUGS (3)
  1. YERVOY [Suspect]
     Active Substance: IPILIMUMAB
     Indication: Renal cell carcinoma
     Dosage: IO+IO TREATMENT, 4 COURSES
     Route: 041
  2. OPDIVO [Suspect]
     Active Substance: NIVOLUMAB
     Indication: Renal cell carcinoma
     Dosage: IO+IO TREATMENT, 4 COURSES
  3. OPDIVO [Suspect]
     Active Substance: NIVOLUMAB
     Dosage: IO MONOTHERAPY

REACTIONS (3)
  - Immune-mediated gastritis [Unknown]
  - Gastric ulcer [Unknown]
  - Cytomegalovirus infection [Unknown]
